FAERS Safety Report 8888568 (Version 3)
Quarter: 2012Q4

REPORT INFORMATION
  Report Type: 
  Country: JP (occurrence: JP)
  Receive Date: 20121106
  Receipt Date: 20121123
  Transmission Date: 20130627
  Serious: Yes (Hospitalization, Other)
  Sender: FDA-Public Use
  Company Number: PHHY2012JP100929

PATIENT
  Weight: 48 kg

DRUGS (41)
  1. ZOMETA [Suspect]
     Indication: METASTASES TO BONE
     Dosage: UNK UKN, UNK
     Route: 041
  2. ZOMETA [Suspect]
     Dosage: 4 mg per 4 weeks
  3. FENTANYL [Concomitant]
     Indication: PAIN
     Dosage: 2.1 mg, UNK
     Route: 062
  4. FENTANYL [Concomitant]
     Dosage: 6.3 mg, UNK
     Route: 062
  5. FENTANYL [Concomitant]
     Dosage: 8.4 mg, UNK
     Route: 062
  6. FENTANYL [Concomitant]
     Dosage: 12.6 mg, UNK
     Route: 062
  7. FENTANYL [Concomitant]
     Dosage: 16.8 mg, UNK
     Route: 062
  8. FENTANYL [Concomitant]
     Dosage: 25.2 mg, UNK
     Route: 062
  9. FENTANYL [Concomitant]
     Dosage: 33.6 mg, UNK
     Route: 062
  10. FENTANYL [Concomitant]
     Dosage: 50.4 mg, UNK
     Route: 062
  11. FENTANYL [Concomitant]
     Dosage: 67.2 mg, UNK
     Route: 062
  12. FENTANYL [Concomitant]
     Dosage: 84.0 mg, UNK
     Route: 062
  13. FENTANYL [Concomitant]
     Dosage: 2.1 mg, per three days
  14. FENTANYL [Concomitant]
     Dosage: 4.2 mg, per three days
  15. FENTANYL [Concomitant]
     Dosage: 6.3 mg, per three days
  16. FENTANYL [Concomitant]
     Dosage: 8.4 mg, per three days
  17. FENTANYL [Concomitant]
     Dosage: 12.6 mg, per three days
  18. FENTANYL [Concomitant]
     Dosage: 16.8 mg, per three days
  19. FENTANYL [Concomitant]
     Dosage: 25.2 mg, per three days
     Route: 062
  20. FENTANYL [Concomitant]
     Dosage: 33.6 mg, per three days
     Route: 062
  21. FENTANYL [Concomitant]
     Dosage: 50.4 mg, per three days
  22. FENTANYL [Concomitant]
     Dosage: 67.2 mg, per three days
  23. FENTANYL [Concomitant]
     Dosage: 84.0 mg, per three days
  24. LOXOPROFEN [Concomitant]
     Dosage: 180 mg, per day
     Route: 048
  25. MORPHINE HYDROCHLORIDE IHYDRATE [Concomitant]
     Indication: PAIN
     Dosage: 10 mg, UNK
     Route: 048
  26. MORPHINE HYDROCHLORIDE IHYDRATE [Concomitant]
     Dosage: 20 mg, UNK
     Route: 048
  27. MORPHINE HYDROCHLORIDE IHYDRATE [Concomitant]
     Dosage: 40 mg, UNK
     Route: 048
  28. MORPHINE HYDROCHLORIDE IHYDRATE [Concomitant]
     Dosage: 150 mg, UNK
     Route: 048
  29. MORPHINE HYDROCHLORIDE IHYDRATE [Concomitant]
     Dosage: 5 mg, twice-daily
     Route: 048
  30. MORPHINE HYDROCHLORIDE IHYDRATE [Concomitant]
     Dosage: 10 mg, twice a day
     Route: 048
  31. MORPHINE HYDROCHLORIDE IHYDRATE [Concomitant]
     Dosage: 40 mg, twice a day
     Route: 048
  32. MORPHINE HYDROCHLORIDE IHYDRATE [Concomitant]
     Dosage: 40 mg, three times a day
     Route: 048
  33. MORPHINE HYDROCHLORIDE IHYDRATE [Concomitant]
     Dosage: 50 mg, three times a day
     Route: 048
  34. MORPHINE HYDROCHLORIDE IHYDRATE [Concomitant]
     Dosage: 600 mg, per day
     Route: 042
  35. MELOXICAM [Concomitant]
     Dosage: 15 mg, per day
     Route: 048
  36. GABAPENTIN [Concomitant]
     Dosage: 200 mg, UNK
     Route: 048
  37. MORPHINE SULFATE [Concomitant]
     Dosage: 1200 mg, per day
  38. MORPHINE SULFATE [Concomitant]
     Dosage: 960 mg, per day
  39. MORPHINE SULFATE [Concomitant]
     Dosage: 720 mg, per day
  40. PREGABALIN [Concomitant]
     Dosage: 150 mg, per day
  41. PREGABALIN [Concomitant]
     Dosage: 300 mg, per day

REACTIONS (9)
  - Pain [Unknown]
  - Back pain [Unknown]
  - Pain in extremity [Recovered/Resolved]
  - Paralysis [Recovering/Resolving]
  - Restlessness [Recovering/Resolving]
  - Constipation [Unknown]
  - Somnolence [Unknown]
  - Gait disturbance [Unknown]
  - Nausea [Unknown]
